FAERS Safety Report 8591371-3 (Version None)
Quarter: 2012Q3

REPORT INFORMATION
  Report Type: 
  Country: None (occurrence: None)
  Receive Date: 20120814
  Receipt Date: 20120802
  Transmission Date: 20120928
  Serious: Yes (Other)
  Sender: FDA-Public Use
  Company Number: US-BAYER-2011-075710

PATIENT
  Age: 34 Year
  Sex: Female

DRUGS (9)
  1. FLOVENT HFA [Concomitant]
     Indication: ASTHMA
     Dosage: 110 ?G, 1 TABLET DAILY
     Route: 048
     Dates: start: 20091113
  2. VITAMIN D [Concomitant]
     Dosage: 50000 U, OW
     Route: 048
     Dates: start: 20091209
  3. ORTHO TRI-CYCLEN [Concomitant]
     Indication: CONTRACEPTION
  4. VENTOLIN [Concomitant]
     Dosage: EVERY 4 HOUR WHILE AWAKE UNK, Q4HR
     Dates: start: 20091113
  5. CETIRIZINE HYDROCHLORIDE [Concomitant]
     Indication: RHINITIS ALLERGIC
     Dosage: 10 MG, HS
     Route: 048
     Dates: start: 20091113
  6. PREDNISONE TAB [Concomitant]
     Dosage: UNK
     Dates: start: 20091113
  7. YAZ [Suspect]
     Indication: CONTRACEPTION
     Dosage: UNK
     Route: 048
     Dates: start: 20090701, end: 20091201
  8. FUROSEMIDE [Concomitant]
     Dosage: 20 MG,1 TABLET DAILY
     Route: 048
  9. LEVOTHYROXINE SODIUM [Concomitant]
     Indication: THYROID DISORDER
     Dosage: UNK
     Route: 048
     Dates: start: 19910101

REACTIONS (1)
  - DEEP VEIN THROMBOSIS [None]
